FAERS Safety Report 5033975-0 (Version None)
Quarter: 2006Q2

REPORT INFORMATION
  Report Type: 
  Country: None (occurrence: None)
  Receive Date: 20060512
  Receipt Date: 20050405
  Transmission Date: 20061013
  Serious: Yes (Other)
  Sender: FDA-Public Use
  Company Number: HQWYE272128DEC04

PATIENT
  Sex: Male

DRUGS (3)
  1. INDERAL LA [Suspect]
     Dosage: ^TAKE IT JUST AFTER BREAKFAST OR AFTER LUNCH^
  2. LIPITOR [Concomitant]
  3. TESTOSTERONE [Concomitant]

REACTIONS (1)
  - GASTRITIS EROSIVE [None]
